FAERS Safety Report 4691432-5 (Version None)
Quarter: 2005Q2

REPORT INFORMATION
  Report Type: 
  Country: None (occurrence: None)
  Receive Date: 20050615
  Receipt Date: 20050531
  Transmission Date: 20051028
  Serious: Yes (Hospitalization, Other)
  Sender: FDA-Public Use
  Company Number: USA-2003-0010608

PATIENT
  Age: 53 Year
  Sex: Female

DRUGS (6)
  1. OXYCONTIN [Suspect]
     Indication: PAIN
     Dosage: 40 MG, BID, ORAL
     Route: 048
  2. TOPROL XL (METOPROLOL SUCCIANTE0 [Concomitant]
  3. ALDACTAZIDE (SPIRONOLACTONE, HYDROCHLOROTHIAZIDE) [Concomitant]
  4. NORVASC [Concomitant]
  5. VICODIN [Concomitant]
  6. XANAX [Concomitant]

REACTIONS (26)
  - ANOREXIA [None]
  - ANXIETY [None]
  - BILE DUCT STENOSIS [None]
  - BLOOD CREATINE PHOSPHOKINASE INCREASED [None]
  - CHEST PAIN [None]
  - COUGH [None]
  - CRYING [None]
  - DEPRESSION [None]
  - DRUG DEPENDENCE [None]
  - DRUG TOLERANCE [None]
  - DRUG WITHDRAWAL SYNDROME [None]
  - DYSPNOEA [None]
  - FEELING HOT AND COLD [None]
  - HEADACHE [None]
  - HEPATOMEGALY [None]
  - HOT FLUSH [None]
  - LUNG INFILTRATION [None]
  - MUSCULOSKELETAL STIFFNESS [None]
  - OEDEMA [None]
  - ORTHOPNOEA [None]
  - PAIN [None]
  - PANCREATIC MASS [None]
  - PANCREATITIS CHRONIC [None]
  - PNEUMONIA PRIMARY ATYPICAL [None]
  - PYREXIA [None]
  - WHEEZING [None]
